FAERS Safety Report 7413512-3 (Version None)
Quarter: 2011Q2

REPORT INFORMATION
  Report Type: 
  Country: None (occurrence: None)
  Receive Date: 20110413
  Receipt Date: 20110407
  Transmission Date: 20111010
  Serious: Yes (Death, Hospitalization, Other)
  Sender: FDA-Public Use
  Company Number: PHHY2011US28155

PATIENT
  Sex: Male

DRUGS (3)
  1. ZOMETA [Suspect]
     Indication: RENAL CANCER
     Dosage: 4 MG, UNK
     Dates: start: 20090917, end: 20100506
  2. DECADRON [Suspect]
  3. SUTENT [Concomitant]
     Indication: RENAL CANCER

REACTIONS (34)
  - METASTASES TO LUNG [None]
  - PULMONARY EMBOLISM [None]
  - DEHYDRATION [None]
  - RENAL MASS [None]
  - INTRA-ABDOMINAL PRESSURE INCREASED [None]
  - UPPER GASTROINTESTINAL HAEMORRHAGE [None]
  - PNEUMONIA [None]
  - HAEMOGLOBIN DECREASED [None]
  - OSTEOSCLEROSIS [None]
  - PULMONARY ARTERY THROMBOSIS [None]
  - DYSPNOEA [None]
  - CUSHINGOID [None]
  - RENAL FAILURE ACUTE [None]
  - BLOOD ALBUMIN DECREASED [None]
  - NEOPLASM MALIGNANT [None]
  - PLEURAL EFFUSION [None]
  - LUNG CONSOLIDATION [None]
  - OVERWEIGHT [None]
  - HYPOTHYROIDISM [None]
  - HEPATIC MASS [None]
  - LOCALISED INTRAABDOMINAL FLUID COLLECTION [None]
  - SKIN STRIAE [None]
  - PAIN IN EXTREMITY [None]
  - METASTASES TO HEART [None]
  - RESPIRATORY DISTRESS [None]
  - DEEP VEIN THROMBOSIS [None]
  - DERMATITIS ACNEIFORM [None]
  - OSTEOLYSIS [None]
  - PULMONARY THROMBOSIS [None]
  - SKIN ATROPHY [None]
  - UMBILICAL HERNIA [None]
  - EXCORIATION [None]
  - METASTASES TO PERITONEUM [None]
  - ECCHYMOSIS [None]
